FAERS Safety Report 8517570 (Version 3)
Quarter: 2014Q1

REPORT INFORMATION
  Report Type: Spontaneous
  Country: US (occurrence: US)
  Receive Date: 20120417
  Receipt Date: 20140204
  Transmission Date: 20141002
  Serious: Yes (Hospitalization, Other)
  Sender: FDA-Public Use
  Company Number: US-ASTRAZENECA-2012SE07232

PATIENT
  Age: 82 Year
  Sex: Male
  Weight: 115.2 kg

DRUGS (5)
  1. NEXIUM [Suspect]
     Indication: HIATUS HERNIA
     Route: 048
     Dates: start: 1994, end: 20131013
  2. OMEPRAZOLE [Suspect]
     Route: 048
  3. LISINOPRIL [Suspect]
     Indication: HYPERTENSION
     Route: 048
  4. DITROPAN [Concomitant]
     Indication: POLLAKIURIA
     Route: 048
  5. FLUTICOSONE [Concomitant]
     Indication: MULTIPLE ALLERGIES
     Route: 048

REACTIONS (7)
  - Oesophageal stenosis [Recovered/Resolved]
  - Hiatus hernia [Recovered/Resolved]
  - Hypoacusis [Unknown]
  - Off label use [Unknown]
  - Off label use [Unknown]
  - Drug dose omission [Unknown]
  - Drug ineffective [Unknown]
